FAERS Safety Report 7809773-9 (Version None)
Quarter: 2011Q4

REPORT INFORMATION
  Report Type: 
  Country: None (occurrence: None)
  Receive Date: 20111012
  Receipt Date: 20111003
  Transmission Date: 20120403
  Serious: Yes (Hospitalization)
  Sender: FDA-Public Use
  Company Number: US-BAYER-2010-006653

PATIENT
  Age: 35 Year
  Sex: Female
  Weight: 90 kg

DRUGS (4)
  1. ISONIAZID [Concomitant]
     Dosage: UNK
     Dates: start: 20020101
  2. IBUPROFEN (ADVIL) [Concomitant]
     Dosage: UNK
     Dates: start: 19900101
  3. YAZ [Suspect]
     Indication: CONTRACEPTION
     Dosage: UNK
     Route: 048
     Dates: start: 20090101, end: 20090401
  4. YASMIN [Suspect]
     Indication: CONTRACEPTION
     Dosage: UNK
     Route: 048
     Dates: start: 20010101, end: 20050101

REACTIONS (9)
  - CHOLECYSTITIS ACUTE [None]
  - CHOLELITHIASIS [None]
  - ABDOMINAL PAIN [None]
  - DISCOMFORT [None]
  - POST PROCEDURAL DISCOMFORT [None]
  - GALLBLADDER DISORDER [None]
  - ANXIETY [None]
  - CHOLECYSTITIS CHRONIC [None]
  - PAIN [None]
